FAERS Safety Report 9094905 (Version 1)
Quarter: 2013Q1

REPORT INFORMATION
  Report Type: Spontaneous
  Country: US (occurrence: None)
  Receive Date: 20130214
  Receipt Date: 20130214
  Transmission Date: 20140127
  Serious: No
  Sender: FDA-Public Use
  Company Number: None

PATIENT
  Age: 34 Year
  Sex: Female
  Weight: 63.5 kg

DRUGS (1)
  1. DEXTROMETHORPHAN 5ML POLISTIREX KROGER COUGH DM [Suspect]
     Indication: ANTITUSSIVE THERAPY
     Dosage: 12HOURS
     Route: 048
     Dates: start: 20130211, end: 20130223

REACTIONS (2)
  - Pruritus [None]
  - Urticaria [None]
